FAERS Safety Report 24443057 (Version 2)
Quarter: 2024Q4

REPORT INFORMATION
  Report Type: Spontaneous
  Country: TW (occurrence: TW)
  Receive Date: 20241016
  Receipt Date: 20241017
  Transmission Date: 20250115
  Serious: No
  Sender: ROCHE
  Company Number: TW-CHUGAI-2024018768

PATIENT
  Age: 70 Year
  Sex: Male
  Weight: 55.0 kg

DRUGS (1)
  1. HEMLIBRA [Suspect]
     Active Substance: EMICIZUMAB-KXWH
     Indication: Factor VIII deficiency
     Dosage: 360 MILLIGRAM, ONCE/4WEEKS
     Route: 058
     Dates: start: 202312

REACTIONS (3)
  - Mouth ulceration [Not Recovered/Not Resolved]
  - Genital ulceration [Not Recovered/Not Resolved]
  - Skin wound [Not Recovered/Not Resolved]
